FAERS Safety Report 21194885 (Version 2)
Quarter: 2022Q3

REPORT INFORMATION
  Report Type: Spontaneous
  Country: BR (occurrence: BR)
  Receive Date: 20220810
  Receipt Date: 20220816
  Transmission Date: 20221026
  Serious: Yes (Death, Other)
  Sender: FDA-Public Use
  Company Number: BR-PFIZER INC-PV202200038103

PATIENT
  Age: 16 Year
  Sex: Female

DRUGS (4)
  1. CEFTAZIDIME [Suspect]
     Active Substance: CEFTAZIDIME
     Indication: Meningitis
     Dosage: UNK
  2. CEFTAZIDIME [Suspect]
     Active Substance: CEFTAZIDIME
     Indication: Bacillus infection
  3. IMIPENEM [Suspect]
     Active Substance: IMIPENEM
     Indication: Meningitis
     Dosage: UNK
  4. IMIPENEM [Suspect]
     Active Substance: IMIPENEM
     Indication: Bacillus infection

REACTIONS (1)
  - Drug ineffective [Fatal]
